FAERS Safety Report 5562487-0 (Version None)
Quarter: 2007Q4

REPORT INFORMATION
  Report Type: 
  Country: None (occurrence: None)
  Receive Date: 20071215
  Receipt Date: 20061211
  Transmission Date: 20080405
  Serious: No
  Sender: FDA-Public Use
  Company Number: US-AMGEN-US196144

PATIENT
  Sex: Female

DRUGS (3)
  1. ENBREL [Suspect]
     Indication: RHEUMATOID ARTHRITIS
     Route: 058
     Dates: start: 20060919
  2. METHOTREXATE [Concomitant]
     Dates: start: 19990101
  3. ESTROGEN NOS [Concomitant]
     Route: 065

REACTIONS (5)
  - CONTUSION [None]
  - HEADACHE [None]
  - INJECTION SITE REACTION [None]
  - NAUSEA [None]
  - PAIN [None]
